FAERS Safety Report 7515946-5 (Version None)
Quarter: 2011Q2

REPORT INFORMATION
  Report Type: 
  Country: None (occurrence: None)
  Receive Date: 20110526
  Receipt Date: 20110526
  Transmission Date: 20111010
  Serious: Yes (Other)
  Sender: FDA-Public Use
  Company Number: None

PATIENT
  Age: 44 Year
  Sex: Female
  Weight: 78.9259 kg

DRUGS (5)
  1. CYTOXAN [Suspect]
     Indication: BREAST CANCER
     Dosage: 1092MG
     Dates: start: 20100309, end: 20100513
  2. BENICAR HCT [Concomitant]
  3. HYDROCODONE BITARTRATE AND ACETAMINOPHEN [Concomitant]
  4. ADRIAMYCIN PFS [Suspect]
     Indication: BREAST CANCER
     Dosage: 110MG
     Dates: start: 20100309, end: 20100513
  5. IXABEPILONE [Suspect]
     Indication: BREAST CANCER
     Dosage: 58MG
     Dates: start: 20100603, end: 20100812

REACTIONS (1)
  - OSTEONECROSIS [None]
